FAERS Safety Report 9251738 (Version 2)
Quarter: 2013Q3

REPORT INFORMATION
  Report Type: Spontaneous
  Country: JP (occurrence: JP)
  Receive Date: 20130424
  Receipt Date: 20130708
  Transmission Date: 20140515
  Serious: No
  Sender: FDA-Public Use
  Company Number: JP-BRISTOL-MYERS SQUIBB COMPANY-18808873

PATIENT
  Age: 23 Year
  Sex: Female

DRUGS (4)
  1. ABILIFY TABS [Suspect]
     Indication: BIPOLAR I DISORDER
     Dosage: 06SEP10-07SEP10:12MG/DAY?ALSO TAKEN IN 12MG/DAY.24MG/DAY,30MG/DAY DOSES ON UNK DATES.
     Route: 050
     Dates: start: 20100906
  2. INSULIN [Concomitant]
  3. HALOPERIDOL [Concomitant]
  4. LORAZEPAM [Concomitant]
     Dosage: TABS

REACTIONS (2)
  - Pregnancy [Recovered/Resolved]
  - Live birth [Unknown]
